FAERS Safety Report 8998335 (Version 1)
Quarter: 2013Q1

REPORT INFORMATION
  Report Type: Spontaneous
  Country: GB (occurrence: GB)
  Receive Date: 20130102
  Receipt Date: 20130102
  Transmission Date: 20140127
  Serious: Yes (Other)
  Sender: FDA-Public Use
  Company Number: GB-ASTRAZENECA-2012SE77748

PATIENT
  Age: 20819 Day
  Sex: Female
  Weight: 80 kg

DRUGS (4)
  1. ATENOLOL [Suspect]
     Indication: HYPERTENSION
     Route: 048
     Dates: start: 2002, end: 20120921
  2. CETIRIZINE [Concomitant]
     Indication: SEASONAL ALLERGY
     Route: 048
     Dates: start: 20110202
  3. SENNA [Concomitant]
     Indication: CONSTIPATION
     Route: 048
     Dates: start: 20110202
  4. BENDROFLUMETHIAZIDE [Concomitant]
     Indication: HYPERTENSION
     Dates: start: 2002, end: 20110928

REACTIONS (1)
  - Cough [Recovered/Resolved]
